FAERS Safety Report 8455341-8 (Version None)
Quarter: 2012Q2

REPORT INFORMATION
  Report Type: 
  Country: None (occurrence: None)
  Receive Date: 20120621
  Receipt Date: 20120612
  Transmission Date: 20120825
  Serious: Yes (Other)
  Sender: FDA-Public Use
  Company Number: US-JNJFOC-20120607748

PATIENT
  Age: 65 Year
  Sex: Male
  Weight: 113.4 kg

DRUGS (2)
  1. NEUTROGENA T/GEL THERAPEUTIC SHAMPOO ORIGINAL FORMULA [Suspect]
     Indication: DANDRUFF
     Route: 061
  2. UNKNOWN MEDICATION [Concomitant]
     Route: 065

REACTIONS (2)
  - EXPIRED DRUG ADMINISTERED [None]
  - PRECANCEROUS CELLS PRESENT [None]
